FAERS Safety Report 7088293-6 (Version None)
Quarter: 2010Q4

REPORT INFORMATION
  Report Type: 
  Country: None (occurrence: None)
  Receive Date: 20101108
  Receipt Date: 20101026
  Transmission Date: 20110411
  Serious: Yes (Hospitalization)
  Sender: FDA-Public Use
  Company Number: -SANOFI-AVENTIS-A01200816304

PATIENT
  Age: 57 Year
  Sex: Female

DRUGS (9)
  1. CLOPIDOGREL BISULFATE [Suspect]
     Dosage: UNIT DOSE: 75 MG
     Route: 048
  2. CLOPIDOGREL BISULFATE [Suspect]
     Indication: ANTICOAGULANT THERAPY
     Dosage: UNIT DOSE: 75 MG
     Route: 048
  3. ASPIRIN [Suspect]
     Route: 065
  4. ASPIRIN [Suspect]
     Indication: ANTICOAGULANT THERAPY
     Route: 065
  5. OMEPRAZOLE [Concomitant]
     Route: 065
  6. ISOSORBIDE MONONITRATE [Concomitant]
     Route: 065
  7. BISOPROLOL [Concomitant]
     Route: 065
  8. SIMVASTATIN [Concomitant]
     Route: 065
  9. TIBOLONE [Concomitant]
     Route: 065

REACTIONS (7)
  - COLON CANCER [None]
  - DYSPNOEA EXERTIONAL [None]
  - GASTROINTESTINAL HAEMORRHAGE [None]
  - IRON DEFICIENCY ANAEMIA [None]
  - OFF LABEL USE [None]
  - PALLOR [None]
  - SYNCOPE [None]
